FAERS Safety Report 6148076-8 (Version None)
Quarter: 2009Q2

REPORT INFORMATION
  Report Type: 
  Country: None (occurrence: None)
  Receive Date: 20090408
  Receipt Date: 20090402
  Transmission Date: 20091009
  Serious: Yes (Other)
  Sender: FDA-Public Use
  Company Number: B0567387A

PATIENT
  Sex: Female

DRUGS (2)
  1. TYVERB [Suspect]
     Route: 048
     Dates: start: 20090201, end: 20090331
  2. XELODA [Suspect]
     Route: 048
     Dates: start: 20090201, end: 20090331

REACTIONS (3)
  - ANAL PRURITUS [None]
  - ANORECTAL DISCOMFORT [None]
  - RASH [None]
